FAERS Safety Report 5390521-X (Version None)
Quarter: 2007Q3

REPORT INFORMATION
  Report Type: 
  Country: None (occurrence: None)
  Receive Date: 20070718
  Receipt Date: 20060731
  Transmission Date: 20080115
  Serious: No
  Sender: FDA-Public Use
  Company Number: US-KINGPHARMUSA00001-K200600995

PATIENT

DRUGS (6)
  1. LEVOXYL [Suspect]
     Indication: HYPOTHYROIDISM
     Dosage: 50 MCG, QD
     Route: 048
     Dates: start: 20030101, end: 20060729
  2. LEVOXYL [Suspect]
     Dosage: 50 MCG, QD
     Route: 048
     Dates: start: 20060731
  3. LEVOXYL [Suspect]
     Dosage: 50 MCG QIW, 100 MCG TIW
  4. ^NUTRATHERA^ [Suspect]
     Indication: VITAMIN SUPPLEMENTATION
     Dosage: 1 TABLET, QD
     Route: 048
     Dates: start: 20050101, end: 20060701
  5. ^HYPOALLERGENIC CALCIUM^ [Suspect]
     Indication: MINERAL SUPPLEMENTATION
     Dosage: 1000 MG, QD
     Route: 048
     Dates: start: 20050101, end: 20060701
  6. MAGNESIUM SULFATE [Suspect]
     Indication: MINERAL SUPPLEMENTATION
     Dosage: 100 MG, QHS
     Route: 048
     Dates: start: 20050101, end: 20060101

REACTIONS (9)
  - ABDOMINAL PAIN [None]
  - COELIAC DISEASE [None]
  - DIARRHOEA [None]
  - DIZZINESS [None]
  - HEART RATE IRREGULAR [None]
  - HOT FLUSH [None]
  - HYPERHIDROSIS [None]
  - MALAISE [None]
  - NAUSEA [None]
